FAERS Safety Report 12384503 (Version 1)
Quarter: 2016Q2

REPORT INFORMATION
  Report Type: Spontaneous
  Country: US (occurrence: US)
  Receive Date: 20160519
  Receipt Date: 20160519
  Transmission Date: 20160815
  Serious: Yes (Disabling)
  Sender: FDA-Public Use
  Company Number: US-OTSUKA-2016_010705

PATIENT

DRUGS (1)
  1. REXULTI [Suspect]
     Active Substance: BREXPIPRAZOLE
     Indication: PRODUCT USED FOR UNKNOWN INDICATION
     Dosage: 0.5MG PILLS CUT IN HALF AND REDID THE 7 DAYS AT 0.25 MG
     Route: 065

REACTIONS (12)
  - Panic attack [Unknown]
  - Depressed mood [Unknown]
  - Dyskinesia [Unknown]
  - Wrong technique in product usage process [Unknown]
  - Diarrhoea [Unknown]
  - Anxiety [Unknown]
  - Oral discomfort [Unknown]
  - Gastric disorder [Unknown]
  - Headache [Unknown]
  - Disturbance in attention [Unknown]
  - Restless legs syndrome [Unknown]
  - Hypersomnia [Unknown]
